FAERS Safety Report 20789678 (Version 2)
Quarter: 2022Q2

REPORT INFORMATION
  Report Type: Spontaneous
  Country: US (occurrence: US)
  Receive Date: 20220505
  Receipt Date: 20220630
  Transmission Date: 20220721
  Serious: No
  Sender: FDA-Public Use
  Company Number: US-PFIZER INC-202200641820

PATIENT
  Age: 57 Year
  Sex: Female
  Weight: 93.44 kg

DRUGS (2)
  1. ESTRING [Suspect]
     Active Substance: ESTRADIOL
     Indication: Atrophic vulvovaginitis
     Dosage: UNK
  2. ESTRING [Suspect]
     Active Substance: ESTRADIOL
     Indication: Dyspareunia

REACTIONS (4)
  - Vulvovaginal discomfort [Unknown]
  - Vulvovaginal pain [Unknown]
  - Urinary incontinence [Unknown]
  - Device expulsion [Unknown]
